FAERS Safety Report 5193711-4 (Version None)
Quarter: 2006Q4

REPORT INFORMATION
  Report Type: 
  Country: None (occurrence: None)
  Receive Date: 20061222
  Receipt Date: 20061213
  Transmission Date: 20070319
  Serious: Yes (Hospitalization)
  Sender: FDA-Public Use
  Company Number: 2006PV026862

PATIENT
  Age: 53 Year
  Sex: Female
  Weight: 93.6678 kg

DRUGS (5)
  1. BYETTA [Suspect]
     Indication: DIABETES MELLITUS NON-INSULIN-DEPENDENT
     Dosage: 10 + 5 MCG;BID; SC
     Route: 058
     Dates: start: 20060930, end: 20061101
  2. BYETTA [Suspect]
     Indication: DIABETES MELLITUS NON-INSULIN-DEPENDENT
     Dosage: 10 + 5 MCG;BID; SC
     Route: 058
     Dates: start: 20061102
  3. METFORMIN HCL [Concomitant]
  4. LISINOPRIL [Concomitant]
  5. ESTRATEST [Concomitant]

REACTIONS (4)
  - INJECTION SITE BRUISING [None]
  - INJECTION SITE RASH [None]
  - ROTATOR CUFF SYNDROME [None]
  - WEIGHT DECREASED [None]
